FAERS Safety Report 8776060 (Version 1)
Quarter: 2012Q4

REPORT INFORMATION
  Report Type: 
  Country: FR (occurrence: FR)
  Receive Date: 20120910
  Receipt Date: 20120910
  Transmission Date: 20130627
  Serious: Yes (Hospitalization)
  Sender: FDA-Public Use
  Company Number: FR-ACTELION-A-CH2009-26207

PATIENT
  Age: 2 Year
  Sex: Male
  Weight: 10 kg

DRUGS (4)
  1. ZAVESCA [Suspect]
     Indication: NIEMANN-PICK DISEASE
     Dosage: 50 mg, tid
     Route: 048
     Dates: start: 20090304, end: 20091216
  2. ZAVESCA [Suspect]
     Dosage: 25 mg, bid
     Route: 048
     Dates: start: 20090202, end: 20090303
  3. ZAVESCA [Suspect]
     Dosage: UNK
     Route: 048
     Dates: start: 20091219
  4. MOPRAL [Concomitant]

REACTIONS (16)
  - Pancytopenia [Recovered/Resolved]
  - Bronchial obstruction [Recovering/Resolving]
  - Diarrhoea [Recovered/Resolved]
  - Lymphopenia [Recovered/Resolved]
  - Leukopenia [Recovered/Resolved]
  - Neutropenia [Recovered/Resolved]
  - Thrombocytopenia [Recovered/Resolved]
  - Pyrexia [Recovering/Resolving]
  - Aspiration [Recovering/Resolving]
  - Aspartate aminotransferase increased [Unknown]
  - Reticulocyte count decreased [Recovered/Resolved]
  - C-reactive protein increased [Unknown]
  - Convulsion [Unknown]
  - Haematochezia [Unknown]
  - Respiratory syncytial virus test positive [Unknown]
  - Anaemia [Unknown]
